FAERS Safety Report 19440143 (Version 1)
Quarter: 2021Q2

REPORT INFORMATION
  Report Type: Other
  Country: TR (occurrence: TR)
  Receive Date: 20210620
  Receipt Date: 20210620
  Transmission Date: 20210717
  Serious: Yes (Life-Threatening, Hospitalization)
  Sender: FDA-Public Use
  Company Number: TR-B.BRAUN MEDICAL INC.-2112896

PATIENT
  Age: 18 Year
  Sex: Female

DRUGS (5)
  1. DOPAMINE [Concomitant]
     Active Substance: DOPAMINE HYDROCHLORIDE
     Route: 042
  2. NOREPINEPHRINE BITARTRATE. [Concomitant]
     Active Substance: NOREPINEPHRINE BITARTRATE
     Route: 042
  3. DIAZEPAM. [Concomitant]
     Active Substance: DIAZEPAM
     Route: 042
  4. LIDOCAINE HYDROCHLORIDE AND DEXTROSE [Suspect]
     Active Substance: DEXTROSE\LIDOCAINE HYDROCHLORIDE
     Indication: VENTRICULAR TACHYCARDIA
     Route: 042
  5. SODIUM BICARBONATE. [Concomitant]
     Active Substance: SODIUM BICARBONATE
     Route: 042

REACTIONS (1)
  - Drug ineffective [Recovered/Resolved]
